FAERS Safety Report 7503383-9 (Version None)
Quarter: 2011Q2

REPORT INFORMATION
  Report Type: 
  Country: None (occurrence: None)
  Receive Date: 20110525
  Receipt Date: 20110518
  Transmission Date: 20111010
  Serious: Yes (Hospitalization)
  Sender: FDA-Public Use
  Company Number: A0927828A

PATIENT
  Age: 80 Year
  Sex: Male

DRUGS (5)
  1. CHEMOTHERAPY [Suspect]
  2. PREDNISONE [Concomitant]
  3. ARIXTRA [Suspect]
     Dosage: 2.5MG PER DAY
     Route: 058
     Dates: start: 20110301
  4. SOTALOL HCL [Concomitant]
  5. DIGOXIN [Concomitant]

REACTIONS (1)
  - PULMONARY THROMBOSIS [None]
